FAERS Safety Report 13493761 (Version 2)
Quarter: 2017Q3

REPORT INFORMATION
  Report Type: Report from Study
  Country: JP (occurrence: JP)
  Receive Date: 20170427
  Receipt Date: 20170825
  Transmission Date: 20171127
  Serious: Yes (Death, Hospitalization, Other)
  Sender: FDA-Public Use
  Company Number: JP-AMGEN-JPNCT2016151318

PATIENT
  Age: 70 Year
  Sex: Male
  Weight: 55.6 kg

DRUGS (27)
  1. PIMOBENDAN [Concomitant]
     Active Substance: PIMOBENDAN
     Indication: PRODUCT USED FOR UNKNOWN INDICATION
     Dosage: 2.5 MG, QD
     Dates: end: 20160916
  2. LAC-B [Concomitant]
     Active Substance: BIFIDOBACTERIUM SPP.
     Indication: PRODUCT USED FOR UNKNOWN INDICATION
     Dosage: UNK
     Dates: start: 20160917
  3. SOTACOR [Concomitant]
     Active Substance: SOTALOL HYDROCHLORIDE
     Indication: PRODUCT USED FOR UNKNOWN INDICATION
     Dosage: UNK
     Dates: start: 20160607
  4. ELIETEN [Concomitant]
     Active Substance: METOCLOPRAMIDE
     Indication: PRODUCT USED FOR UNKNOWN INDICATION
     Dosage: UNK
     Dates: start: 20160610
  5. FEBURIC [Concomitant]
     Active Substance: FEBUXOSTAT
     Indication: PRODUCT USED FOR UNKNOWN INDICATION
     Dosage: UNK
     Dates: start: 20160930
  6. IVABRADINE [Suspect]
     Active Substance: IVABRADINE
     Dosage: 2.5 MG, BID
     Route: 048
     Dates: start: 20160826, end: 20160908
  7. IVABRADINE [Suspect]
     Active Substance: IVABRADINE
     Dosage: 5 MG, BID
     Route: 048
     Dates: start: 20160909, end: 20170105
  8. FUROSEMIDE TEVA [Concomitant]
     Active Substance: FUROSEMIDE
     Dosage: 100 MG DAILY
     Dates: start: 20170606, end: 20170808
  9. ELIQUIS [Concomitant]
     Active Substance: APIXABAN
     Indication: PRODUCT USED FOR UNKNOWN INDICATION
     Dosage: 5 MG, QD
     Dates: start: 20160526, end: 20161020
  10. SOFTEAR [Concomitant]
     Indication: PRODUCT USED FOR UNKNOWN INDICATION
     Dosage: UNK
     Dates: start: 2014, end: 20170622
  11. IVABRADINE [Suspect]
     Active Substance: IVABRADINE
     Dosage: 5 MG, BID
     Route: 048
     Dates: start: 20160812, end: 20160825
  12. FUROSEMIDE TEVA [Concomitant]
     Active Substance: FUROSEMIDE
     Dosage: 60 MG, QD
     Route: 048
     Dates: start: 20161015
  13. FUROSEMIDE TEVA [Concomitant]
     Active Substance: FUROSEMIDE
     Dosage: 30 MG, QD
     Dates: start: 20170601, end: 20170605
  14. PERINDOPRIL [Concomitant]
     Active Substance: PERINDOPRIL
     Indication: PRODUCT USED FOR UNKNOWN INDICATION
     Dosage: UNK
     Dates: start: 20160519
  15. IVABRADINE [Suspect]
     Active Substance: IVABRADINE
     Indication: CARDIAC FAILURE CHRONIC
     Dosage: 2.5 MG, BID
     Route: 048
     Dates: start: 20160729, end: 20160811
  16. RABEPRAZOLE [Concomitant]
     Active Substance: RABEPRAZOLE
     Indication: PRODUCT USED FOR UNKNOWN INDICATION
     Dosage: UNK
     Dates: start: 20160502
  17. SAMSCA [Concomitant]
     Active Substance: TOLVAPTAN
     Dosage: 15 MG, QD
     Dates: start: 20160917
  18. ZOLPIDEM TARTRATE. [Concomitant]
     Active Substance: ZOLPIDEM TARTRATE
     Indication: PRODUCT USED FOR UNKNOWN INDICATION
     Dosage: UNK
     Dates: start: 20160514
  19. MOSAPRIDE CITRATE [Concomitant]
     Active Substance: MOSAPRIDE CITRATE
     Indication: PRODUCT USED FOR UNKNOWN INDICATION
     Dosage: UNK
     Dates: start: 2015
  20. ELIQUIS [Concomitant]
     Active Substance: APIXABAN
     Dosage: 2.5 MG, QD
     Dates: start: 20161021
  21. SAMSCA [Concomitant]
     Active Substance: TOLVAPTAN
     Indication: PRODUCT USED FOR UNKNOWN INDICATION
     Dosage: 7.5 MG, QD
     Dates: end: 20160916
  22. AZOSEMIDE [Concomitant]
     Active Substance: AZOSEMIDE
     Indication: PRODUCT USED FOR UNKNOWN INDICATION
     Dosage: 60 MG, DAILY
     Dates: start: 20161216, end: 20170523
  23. FUROSEMIDE TEVA [Concomitant]
     Active Substance: FUROSEMIDE
     Indication: PRODUCT USED FOR UNKNOWN INDICATION
     Dosage: 40 MG, QD
     Route: 048
     Dates: end: 20161014
  24. SPIRONOLACTONE. [Concomitant]
     Active Substance: SPIRONOLACTONE
     Indication: PRODUCT USED FOR UNKNOWN INDICATION
     Dosage: UNK
     Dates: start: 2015
  25. IVABRADINE [Suspect]
     Active Substance: IVABRADINE
     Dosage: 7.5 MG, BID
     Route: 065
     Dates: start: 20170106, end: 20170808
  26. FUROSEMIDE TEVA [Concomitant]
     Active Substance: FUROSEMIDE
     Dosage: 60 MG, QD
     Route: 048
     Dates: start: 20161014, end: 20170521
  27. PIMOBENDAN [Concomitant]
     Active Substance: PIMOBENDAN
     Dosage: 5 MG, QD
     Dates: start: 20160917

REACTIONS (2)
  - Cardiac failure [Recovered/Resolved]
  - Cardiac failure [Fatal]

NARRATIVE: CASE EVENT DATE: 20160915
